FAERS Safety Report 9693058 (Version 1)
Quarter: 2013Q4

REPORT INFORMATION
  Report Type: Report from Study
  Country: AU (occurrence: AU)
  Receive Date: 20131118
  Receipt Date: 20131118
  Transmission Date: 20140711
  Serious: Yes (Other)
  Sender: FDA-Public Use
  Company Number: AU-ROCHE-1301674

PATIENT
  Sex: 0

DRUGS (1)
  1. RITUXIMAB [Suspect]
     Indication: LYMPHOMA
     Dosage: 1 MG/0.1 ML??NUMBER OF INJECTIONS RANGED BETWEEN 1 AND 17 (MEDIAN=4 INJECTIONS).
     Route: 050

REACTIONS (5)
  - Cataract [Unknown]
  - Intraocular pressure increased [Unknown]
  - Iridocyclitis [Unknown]
  - Vitreous haemorrhage [Unknown]
  - Retinal detachment [Unknown]
